FAERS Safety Report 13665651 (Version 1)
Quarter: 2017Q2

REPORT INFORMATION
  Report Type: Spontaneous
  Country: AT (occurrence: AT)
  Receive Date: 20170619
  Receipt Date: 20170619
  Transmission Date: 20170830
  Serious: Yes (Disabling, Other)
  Sender: FDA-Public Use
  Company Number: AT-BAYER-2017-110373

PATIENT
  Age: 45 Year
  Sex: Female
  Weight: 62 kg

DRUGS (1)
  1. AVELOX [Suspect]
     Active Substance: MOXIFLOXACIN HYDROCHLORIDE
     Indication: ATYPICAL PNEUMONIA
     Dosage: UNK
     Route: 048
     Dates: start: 20130509, end: 20130522

REACTIONS (50)
  - Muscle tightness [Recovered/Resolved with Sequelae]
  - Dissociative disorder [Recovered/Resolved]
  - Dry mouth [Not Recovered/Not Resolved]
  - Dyschezia [Not Recovered/Not Resolved]
  - Irritable bowel syndrome [Not Recovered/Not Resolved]
  - Hepatic enzyme increased [Not Recovered/Not Resolved]
  - Dry skin [Not Recovered/Not Resolved]
  - Movement disorder [Recovered/Resolved with Sequelae]
  - Hyperhidrosis [Recovering/Resolving]
  - Decreased appetite [Not Recovered/Not Resolved]
  - Extrasystoles [Recovered/Resolved]
  - Dizziness [Recovered/Resolved]
  - Nausea [Recovered/Resolved]
  - Joint crepitation [Recovered/Resolved with Sequelae]
  - Fatigue [Not Recovered/Not Resolved]
  - Blood urine present [Not Recovered/Not Resolved]
  - Gastric ulcer [Not Recovered/Not Resolved]
  - Respiratory distress [Recovered/Resolved]
  - Cold sweat [Recovered/Resolved]
  - Asthenia [Recovered/Resolved with Sequelae]
  - Musculoskeletal pain [Recovered/Resolved with Sequelae]
  - Neuralgia [Recovered/Resolved with Sequelae]
  - Mitral valve incompetence [Recovered/Resolved with Sequelae]
  - Dry eye [Not Recovered/Not Resolved]
  - Blood pressure abnormal [Recovered/Resolved with Sequelae]
  - Vision blurred [Recovering/Resolving]
  - Spinal pain [Recovered/Resolved with Sequelae]
  - Hyperaesthesia [Unknown]
  - Intervertebral disc protrusion [Recovered/Resolved]
  - Monoparesis [Recovered/Resolved]
  - Sensory disturbance [Recovered/Resolved with Sequelae]
  - Myalgia [Recovering/Resolving]
  - Urinary tract infection [Not Recovered/Not Resolved]
  - Tachycardia [Recovered/Resolved]
  - Anxiety [Recovered/Resolved]
  - Arthralgia [Recovered/Resolved with Sequelae]
  - Oedema [Not Recovered/Not Resolved]
  - Gastritis [Not Recovered/Not Resolved]
  - Malaise [Not Recovered/Not Resolved]
  - Presyncope [Recovered/Resolved]
  - Arrhythmia [Recovered/Resolved with Sequelae]
  - Depressed level of consciousness [Recovered/Resolved]
  - Tendon pain [Recovered/Resolved with Sequelae]
  - Groin pain [Recovered/Resolved with Sequelae]
  - Chills [Not Recovered/Not Resolved]
  - Alopecia [Recovering/Resolving]
  - Renal impairment [Not Recovered/Not Resolved]
  - Food intolerance [Not Recovered/Not Resolved]
  - Feeling cold [Recovering/Resolving]
  - Night sweats [Recovering/Resolving]

NARRATIVE: CASE EVENT DATE: 20130511
